FAERS Safety Report 6971698-9 (Version None)
Quarter: 2010Q3

REPORT INFORMATION
  Report Type: 
  Country: None (occurrence: None)
  Receive Date: 20100908
  Receipt Date: 20100104
  Transmission Date: 20110219
  Serious: Yes (Other)
  Sender: FDA-Public Use
  Company Number: US-PFIZER INC-2010002915

PATIENT
  Sex: Male

DRUGS (3)
  1. NARDIL [Suspect]
     Indication: DEPRESSION
     Route: 048
     Dates: start: 20090101
  2. LITHIUM CARBONATE [Concomitant]
     Indication: DEPRESSION
     Dates: start: 20090101
  3. CLONAZEPAM [Concomitant]
     Indication: DEPRESSION
     Dosage: 1 MG, 2X/DAY
     Dates: start: 20090101

REACTIONS (1)
  - ERECTILE DYSFUNCTION [None]
